FAERS Safety Report 17295939 (Version 7)
Quarter: 2022Q4

REPORT INFORMATION
  Report Type: Report from Study
  Country: CA (occurrence: CA)
  Receive Date: 20200122
  Receipt Date: 20221118
  Transmission Date: 20230112
  Serious: Yes (Hospitalization, Other)
  Sender: FDA-Public Use
  Company Number: CA-ABBVIE-20K-028-3234155-00

PATIENT
  Age: 72 Year
  Sex: Male

DRUGS (3)
  1. HUMIRA [Suspect]
     Active Substance: ADALIMUMAB
     Indication: Crohn^s disease
     Dosage: 40 MILLIGRAM
     Route: 058
     Dates: start: 20181115, end: 202004
  2. HUMIRA [Suspect]
     Active Substance: ADALIMUMAB
     Dosage: 40 MILLIGRAM
     Route: 058
     Dates: start: 20200423
  3. HUMIRA [Suspect]
     Active Substance: ADALIMUMAB

REACTIONS (20)
  - Large intestine polyp [Unknown]
  - Intestinal anastomosis [Unknown]
  - Defaecation urgency [Unknown]
  - Intestinal resection [Unknown]
  - Gastroenteritis salmonella [Recovered/Resolved]
  - Abdominal pain [Recovering/Resolving]
  - Diarrhoea [Not Recovered/Not Resolved]
  - Unevaluable event [Recovering/Resolving]
  - Gastrointestinal inflammation [Unknown]
  - Diverticulum [Unknown]
  - Rectal tenesmus [Not Recovered/Not Resolved]
  - Gastrointestinal wall thickening [Unknown]
  - Fatigue [Unknown]
  - General symptom [Unknown]
  - Intestinal dilatation [Unknown]
  - Muscle strain [Unknown]
  - Anastomotic ulcer [Unknown]
  - Colitis [Unknown]
  - Abdominal distension [Unknown]
  - Therapeutic response shortened [Not Recovered/Not Resolved]

NARRATIVE: CASE EVENT DATE: 20200401
